FAERS Safety Report 5679147-8 (Version None)
Quarter: 2008Q1

REPORT INFORMATION
  Report Type: 
  Country: None (occurrence: None)
  Receive Date: 20080325
  Receipt Date: 20080317
  Transmission Date: 20080703
  Serious: Yes (Hospitalization)
  Sender: FDA-Public Use
  Company Number: IT-BAYER-200815092GPV

PATIENT
  Age: 25 Year
  Sex: Female

DRUGS (1)
  1. ASPIRIN [Suspect]
     Indication: INFLUENZA LIKE ILLNESS
     Dosage: TOTAL DAILY DOSE: 500 MG  UNIT DOSE: 500 MG
     Route: 048
     Dates: start: 20070806, end: 20070806

REACTIONS (1)
  - ANAPHYLACTIC SHOCK [None]
